FAERS Safety Report 4622524-4 (Version None)
Quarter: 2005Q1

REPORT INFORMATION
  Report Type: 
  Country: None (occurrence: None)
  Receive Date: 20050317
  Receipt Date: 20040525
  Transmission Date: 20050727
  Serious: Yes (Hospitalization)
  Sender: FDA-Public Use
  Company Number: PHEH2004US05813

PATIENT
  Sex: Male

DRUGS (4)
  1. TRILEPTAL [Suspect]
     Dosage: 600 MG, BID, ORAL
     Route: 048
  2. AVELOX [Concomitant]
  3. THIAMINE [Concomitant]
  4. MAGNESIUM OXIDE [Concomitant]

REACTIONS (2)
  - BRADYCARDIA [None]
  - HYPERTHERMIA [None]
